FAERS Safety Report 5575531-1 (Version None)
Quarter: 2007Q4

REPORT INFORMATION
  Report Type: 
  Country: None (occurrence: None)
  Receive Date: 20071227
  Receipt Date: 20071219
  Transmission Date: 20080405
  Serious: Yes (Other)
  Sender: FDA-Public Use
  Company Number: JP-MERCK-0712USA08506

PATIENT
  Age: 59 Year
  Sex: Female

DRUGS (8)
  1. DECADRON [Suspect]
     Indication: BREAST CANCER
     Route: 065
     Dates: start: 20061121
  2. DECADRON [Suspect]
     Route: 065
  3. FLUOROURACIL [Suspect]
     Indication: BREAST CANCER
     Route: 065
     Dates: start: 20061121
  4. FLUOROURACIL [Suspect]
     Route: 065
  5. FARMORUBICIN [Suspect]
     Indication: BREAST CANCER
     Route: 042
     Dates: start: 20061121
  6. FARMORUBICIN [Suspect]
     Route: 042
  7. ENDOXAN [Suspect]
     Indication: BREAST CANCER
     Route: 042
  8. ENDOXAN [Suspect]
     Route: 042

REACTIONS (2)
  - HEPATITIS B [None]
  - NEUTROPHIL COUNT DECREASED [None]
